FAERS Safety Report 15654574 (Version 2)
Quarter: 2019Q1

REPORT INFORMATION
  Report Type: Spontaneous
  Country: US (occurrence: US)
  Receive Date: 20181126
  Receipt Date: 20190131
  Transmission Date: 20190417
  Serious: Yes (Life-Threatening, Hospitalization)
  Sender: FDA-Public Use
  Company Number: US-JNJFOC-20181118359

PATIENT
  Age: 73 Year
  Sex: Female
  Weight: 63.5 kg

DRUGS (2)
  1. XARELTO [Suspect]
     Active Substance: RIVAROXABAN
     Indication: THROMBOSIS PROPHYLAXIS
     Dosage: VARIED DOSE OF 15 MG AND 20 MG
     Route: 048
     Dates: start: 201601, end: 201712
  2. XARELTO [Suspect]
     Active Substance: RIVAROXABAN
     Indication: THROMBOSIS PROPHYLAXIS
     Dosage: VARIED DOSE OF 15 MG AND 20 MG
     Route: 048
     Dates: start: 201601, end: 201712

REACTIONS (5)
  - Haemorrhage [Recovering/Resolving]
  - Acute respiratory failure [Recovering/Resolving]
  - Haemoptysis [Recovered/Resolved]
  - Odynophagia [Recovering/Resolving]
  - Shock haemorrhagic [Recovering/Resolving]

NARRATIVE: CASE EVENT DATE: 20161218
